FAERS Safety Report 4797854-6 (Version None)
Quarter: 2005Q3

REPORT INFORMATION
  Report Type: 
  Country: None (occurrence: None)
  Receive Date: 20050929
  Receipt Date: 20050824
  Transmission Date: 20060218
  Serious: No
  Sender: FDA-Public Use
  Company Number: 05P-163-0294712-00

PATIENT
  Age: 44 Year
  Sex: Female
  Weight: 65.7716 kg

DRUGS (4)
  1. HUMIRA [Suspect]
     Indication: RHEUMATOID ARTHRITIS
     Dosage: 40 MG, 1 IN 2 WK, SUBCUTANEOUS
     Route: 058
     Dates: start: 20040101
  2. LEVOTHYROXINE SODIUM [Concomitant]
  3. DIETARY SUPPLEMENT [Concomitant]
  4. PREDNISONE [Concomitant]

REACTIONS (6)
  - ALOPECIA [None]
  - ERYTHEMA [None]
  - EXTRAOCULAR MUSCLE PARESIS [None]
  - FUNGAL INFECTION [None]
  - HEADACHE [None]
  - PAIN OF SKIN [None]
